FAERS Safety Report 11463144 (Version 2)
Quarter: 2015Q3

REPORT INFORMATION
  Report Type: Report from Study
  Country: US (occurrence: US)
  Receive Date: 20150905
  Receipt Date: 20150923
  Transmission Date: 20151125
  Serious: No
  Sender: FDA-Public Use
  Company Number: PHEH2015US016924

PATIENT
  Age: 61 Year
  Sex: Female

DRUGS (2)
  1. GILENYA [Suspect]
     Active Substance: FINGOLIMOD HYDROCHLORIDE
     Indication: RELAPSING-REMITTING MULTIPLE SCLEROSIS
     Dosage: 0.5 MG, QD
     Route: 048
     Dates: start: 20150827
  2. GILENYA [Suspect]
     Active Substance: FINGOLIMOD HYDROCHLORIDE
     Dosage: TAKING HALF CAPSULE
     Route: 048

REACTIONS (4)
  - Nausea [Unknown]
  - Joint swelling [Unknown]
  - Prescribed underdose [Unknown]
  - Limb discomfort [Unknown]

NARRATIVE: CASE EVENT DATE: 20150827
